FAERS Safety Report 5544377-2 (Version None)
Quarter: 2007Q4

REPORT INFORMATION
  Report Type: 
  Country: None (occurrence: None)
  Receive Date: 20071206
  Receipt Date: 20071129
  Transmission Date: 20080405
  Serious: Yes (Hospitalization, Other)
  Sender: FDA-Public Use
  Company Number: 163-21880-07100771

PATIENT
  Sex: Female

DRUGS (2)
  1. REVLIMID [Suspect]
     Indication: MYELODYSPLASTIC SYNDROME
     Dosage: 5 MG, DAILY, ORAL; 3X WEEKLY, ORAL
     Route: 048
     Dates: start: 20060501, end: 20070901
  2. REVLIMID [Suspect]
     Indication: MYELODYSPLASTIC SYNDROME
     Dosage: 5 MG, DAILY, ORAL; 3X WEEKLY, ORAL
     Route: 048
     Dates: start: 20070101

REACTIONS (2)
  - CARDIAC PACEMAKER INSERTION [None]
  - CONTUSION [None]
